FAERS Safety Report 5495836-2 (Version None)
Quarter: 2007Q4

REPORT INFORMATION
  Report Type: 
  Country: None (occurrence: None)
  Receive Date: 20071025
  Receipt Date: 20070102
  Transmission Date: 20080405
  Serious: No
  Sender: FDA-Public Use
  Company Number: A0625588A

PATIENT
  Age: 73 Year
  Sex: Male

DRUGS (8)
  1. ADVAIR DISKUS 100/50 [Suspect]
     Indication: BRONCHITIS
     Dosage: 1PUFF TWICE PER DAY
     Route: 055
     Dates: start: 20010101
  2. COMBIVENT [Concomitant]
  3. CELEBREX [Concomitant]
  4. ROBAXIN [Concomitant]
  5. LOPID [Concomitant]
  6. CIALIS [Concomitant]
  7. TRIAMTERENE AND HYDROCHLOROTHIAZIDE [Concomitant]
  8. ELAVIL [Concomitant]

REACTIONS (1)
  - CANDIDIASIS [None]
